FAERS Safety Report 9889403 (Version 2)
Quarter: 2014Q1

REPORT INFORMATION
  Report Type: Spontaneous
  Country: US (occurrence: US)
  Receive Date: 20140211
  Receipt Date: 20140317
  Transmission Date: 20141002
  Serious: No
  Sender: FDA-Public Use
  Company Number: US-009507513-1402USA003308

PATIENT
  Age: 55 Year
  Sex: Female

DRUGS (1)
  1. TEMODAR [Suspect]
     Indication: GLIOMATOSIS CEREBRI
     Dosage: 150 MG/M2/DAY FOR 5 DAYS EVERY 28 DAYS
     Route: 048
     Dates: start: 201103

REACTIONS (2)
  - Lymphopenia [Unknown]
  - Fatigue [Unknown]
